FAERS Safety Report 20691900 (Version 2)
Quarter: 2022Q2

REPORT INFORMATION
  Report Type: Spontaneous
  Country: DE (occurrence: DE)
  Receive Date: 20220408
  Receipt Date: 20220512
  Transmission Date: 20220721
  Serious: Yes (Other)
  Sender: FDA-Public Use
  Company Number: DE-VERTEX PHARMACEUTICALS-2021-002156

PATIENT
  Sex: Male
  Weight: 42 kg

DRUGS (21)
  1. KALYDECO [Suspect]
     Active Substance: IVACAFTOR
     Indication: Cystic fibrosis
     Dosage: 150 MG, QD (REDUCED DOSE)
     Route: 048
     Dates: start: 20201007, end: 2020
  2. KALYDECO [Suspect]
     Active Substance: IVACAFTOR
     Dosage: 1 TABLET QD AND IN ALTERNATING DAY, 2 TABLET QD
     Route: 048
     Dates: start: 20201126, end: 20210211
  3. KALYDECO [Suspect]
     Active Substance: IVACAFTOR
     Dosage: 150 MG, QD
     Route: 048
     Dates: start: 20210324, end: 20211124
  4. KALYDECO [Suspect]
     Active Substance: IVACAFTOR
     Dosage: 150 MG, BID
     Route: 048
     Dates: start: 20211124, end: 20220322
  5. PANCRELIPASE [Concomitant]
     Active Substance: PANCRELIPASE
     Dosage: (35,000 AND 25,000 IU)3000 IU/G WITH FAT
  6. URSODIOL [Concomitant]
     Active Substance: URSODIOL
     Dosage: 250MG CAP 1-0-1 (14 MG/KG BODYWEIGHT)
  7. VITAMIN A [Concomitant]
     Active Substance: VITAMIN A
     Dosage: 30,000 IU (1-2 CAPSULE PER DAY)
  8. VITAMIN E [Concomitant]
     Active Substance: .ALPHA.-TOCOPHEROL
     Dosage: 800 IU
  9. VITAMIN D NOS [Concomitant]
     Active Substance: VITAMIN D NOS
     Dosage: 8,000 IU
  10. VITAMIN K [Concomitant]
     Active Substance: PHYTONADIONE
     Dosage: 10 MG
  11. VITAMIN K [Concomitant]
     Active Substance: PHYTONADIONE
     Dosage: 10 DROPS (ON 3 DAYS BEFORE BONE MARROW PUNCTURE PROCEDURE)
  12. SELENIUM [Concomitant]
     Active Substance: SELENIUM
     Dosage: 20 MICROGRAM
  13. ZINC [Concomitant]
     Active Substance: ZINC
     Dosage: 2 MG
  14. MUCOCLEAR [Concomitant]
     Dosage: 6 %, 1-0-1 (BID)
  15. PULMOZYME [Concomitant]
     Active Substance: DORNASE ALFA
     Dosage: 2500 IU, 0-1-0 (QD)
  16. ATROVENT [Concomitant]
     Active Substance: IPRATROPIUM BROMIDE
     Dosage: 2-2-2 PUMPS A DAY (BEFORE LIQUID INHALATION)
  17. SULTANOL [Concomitant]
     Active Substance: ALBUTEROL SULFATE
     Dosage: 2-2-2 PUMPS A DAY (PUFFS (BEFORE LIQUID INHALATION)
  18. CALCIUM [Concomitant]
     Active Substance: CALCIUM
     Dosage: 500 MG, QD
  19. CEFUROXIME [Concomitant]
     Active Substance: CEFUROXIME
     Dosage: 500 MG, BID (1-0-1 FOR 20 DAYS)
  20. COTRIMOXAZOLE [Concomitant]
     Active Substance: SULFAMETHOXAZOLE\TRIMETHOPRIM
     Dosage: 960MG MORN,(EACH 3 DAYS SEQUENTIALLY)
  21. COTRIMOXAZOLE [Concomitant]
     Active Substance: SULFAMETHOXAZOLE\TRIMETHOPRIM
     Dosage: 480MG MORN(EACH 3 DAYS SEQUENTIALLY)

REACTIONS (7)
  - Hepatic cirrhosis [Not Recovered/Not Resolved]
  - Condition aggravated [Not Recovered/Not Resolved]
  - Splenomegaly [Not Recovered/Not Resolved]
  - Portal hypertension [Not Recovered/Not Resolved]
  - Thrombocytopenia [Recovering/Resolving]
  - Lymphopenia [Recovering/Resolving]
  - Neutropenia [Recovering/Resolving]

NARRATIVE: CASE EVENT DATE: 20210211
